FAERS Safety Report 24875060 (Version 1)
Quarter: 2025Q1

REPORT INFORMATION
  Report Type: Spontaneous
  Country: FR (occurrence: FR)
  Receive Date: 20250122
  Receipt Date: 20250122
  Transmission Date: 20250409
  Serious: Yes (Hospitalization, Other)
  Sender: FERTIN PHARMA A/S
  Company Number: FR-Fertin Pharma A/S-2169543

PATIENT
  Age: 62 Year
  Sex: Female

DRUGS (6)
  1. NICOTINE POLACRILEX [Suspect]
     Active Substance: NICOTINE
     Indication: Product used for unknown indication
  2. ASPIRIN [Suspect]
     Active Substance: ASPIRIN
  3. ALTHIAZIDE [Suspect]
     Active Substance: ALTHIAZIDE
  4. SPIRONOLACTONE [Suspect]
     Active Substance: SPIRONOLACTONE
  5. SIMVASTATIN [Suspect]
     Active Substance: SIMVASTATIN
  6. CITALOPRAM [Suspect]
     Active Substance: CITALOPRAM

REACTIONS (4)
  - Thunderclap headache [Recovered/Resolved]
  - Reversible cerebral vasoconstriction syndrome [Unknown]
  - Cerebral infarction [Unknown]
  - Hemiplegia [Unknown]
